FAERS Safety Report 19131616 (Version 1)
Quarter: 2021Q2

REPORT INFORMATION
  Report Type: Spontaneous
  Country: JP (occurrence: JP)
  Receive Date: 20210414
  Receipt Date: 20210414
  Transmission Date: 20210717
  Serious: Yes (Death, Other)
  Sender: FDA-Public Use
  Company Number: JP-ASTRAZENECA-2021A260074

PATIENT
  Sex: Female
  Weight: 49 kg

DRUGS (9)
  1. TAGRISSO [Suspect]
     Active Substance: OSIMERTINIB
     Indication: NON-SMALL CELL LUNG CANCER
     Route: 048
     Dates: start: 20210222, end: 20210307
  2. DILTIAZEM HYDROCHLORIDE. [Concomitant]
     Active Substance: DILTIAZEM HYDROCHLORIDE
     Dosage: DOSE UNKNOWN
     Route: 048
  3. ZOLPIDEM TARTRATE. [Concomitant]
     Active Substance: ZOLPIDEM TARTRATE
     Dosage: DOSE UNKNOWN
     Route: 048
  4. OLMESARTAN [Suspect]
     Active Substance: OLMESARTAN
     Dosage: DOSE UNKNOWN
     Route: 048
  5. LORAZEPAM. [Concomitant]
     Active Substance: LORAZEPAM
     Dosage: DOSE UNKNOWN
     Route: 048
  6. TEPRENONE [Concomitant]
     Active Substance: TEPRENONE
     Dosage: DOSE UNKNOWN
     Route: 048
  7. ASTOMIN [Concomitant]
     Dosage: DOSE UNKNOWN
     Route: 048
  8. TELMISARTAN. [Concomitant]
     Active Substance: TELMISARTAN
     Dosage: DOSE UNKNOWN
     Route: 065
  9. SODIUM GUALENATE HYDRATE [Concomitant]
     Active Substance: SODIUM GUALENATE MONOHYDRATE
     Dosage: DOSE UNKNOWN
     Route: 048

REACTIONS (9)
  - Decreased appetite [Unknown]
  - Oral disorder [Unknown]
  - Neuropathy peripheral [Unknown]
  - Interstitial lung disease [Fatal]
  - Diarrhoea [Unknown]
  - Disseminated intravascular coagulation [Unknown]
  - Oedema [Unknown]
  - Platelet count decreased [Unknown]
  - Blood fibrinogen decreased [Unknown]

NARRATIVE: CASE EVENT DATE: 20210301
